FAERS Safety Report 13671296 (Version 2)
Quarter: 2018Q1

REPORT INFORMATION
  Report Type: Spontaneous
  Country: US (occurrence: US)
  Receive Date: 20170620
  Receipt Date: 20180110
  Transmission Date: 20180508
  Serious: No
  Sender: FDA-Public Use
  Company Number: US-LUNDBECK-DKLU2032399

PATIENT
  Age: 74 Year
  Sex: Male

DRUGS (1)
  1. NORTHERA [Suspect]
     Active Substance: DROXIDOPA
     Indication: PRODUCT USED FOR UNKNOWN INDICATION
     Dosage: SCHEDULE C AND TITRATING
     Route: 048
     Dates: start: 20170529

REACTIONS (9)
  - Dizziness [Unknown]
  - Back disorder [Unknown]
  - Supine hypertension [Unknown]
  - Urinary tract infection [Unknown]
  - Hypotension [Unknown]
  - Gait disturbance [Unknown]
  - Dehydration [Unknown]
  - Peripheral swelling [Unknown]
  - Dysstasia [Unknown]

NARRATIVE: CASE EVENT DATE: 201706
